FAERS Safety Report 22131259 (Version 1)
Quarter: 2023Q1

REPORT INFORMATION
  Report Type: Spontaneous
  Country: IT (occurrence: IT)
  Receive Date: 20230323
  Receipt Date: 20230323
  Transmission Date: 20230417
  Serious: Yes (Other)
  Sender: FDA-Public Use
  Company Number: None

PATIENT
  Age: 82 Year
  Sex: Female

DRUGS (11)
  1. LENALIDOMIDE [Suspect]
     Active Substance: LENALIDOMIDE
     Indication: Plasma cell myeloma
     Dosage: 25 MILLIGRAM, QD (25 MG/DAY FOR 21 DAYS)
     Route: 048
     Dates: start: 202206, end: 20230115
  2. REVLIMID [Suspect]
     Active Substance: LENALIDOMIDE
     Indication: Plasma cell myeloma
     Dosage: 25 MILLIGRAM, QD
     Route: 048
     Dates: start: 20211004, end: 202206
  3. ALLOPURINOL [Concomitant]
     Active Substance: ALLOPURINOL
     Dosage: 300 MG, QOD (1 TABLET AT 6 PM EVERY OTHER DAY)
     Route: 065
  4. CHOLECALCIFEROL [Concomitant]
     Active Substance: CHOLECALCIFEROL
     Dosage: 25000 IU 1 WHOLE BOTTLE BY MOUTH SUNDAY
     Route: 065
  5. LERCANIDIPINE HYDROCHLORIDE [Concomitant]
     Active Substance: LERCANIDIPINE HYDROCHLORIDE
     Dosage: 20 MILLIGRAM, QD (1/2 AT 6 PM)
     Route: 065
  6. LASIX [Concomitant]
     Active Substance: FUROSEMIDE
     Dosage: 1 TABLET AT 10 AM AND 1 AT 3 PM 3 DAYS A WEEK
     Route: 065
  7. ZOFENOPRIL [Concomitant]
     Active Substance: ZOFENOPRIL
     Dosage: 30 MILLIGRAM, QD (1 TABLET IN THE MORNING)
     Route: 065
  8. NEBIVOLOL [Concomitant]
     Active Substance: NEBIVOLOL
     Dosage: 5 MILLIGRAM, QD (1 TABLET IN THE MORNING)
     Route: 065
  9. ESOMEPRAZOLE [Concomitant]
     Active Substance: ESOMEPRAZOLE
     Dosage: 40 MILLIGRAM, Q8H
     Route: 065
  10. CEDRAVIS [Concomitant]
     Dosage: 35 MILLIGRAM, EVERY 15 DAYS
     Route: 065
  11. CLODRONATE DISODIUM [Concomitant]
     Active Substance: CLODRONATE DISODIUM
     Dosage: 20 MGLML, EVERY 15 DAYS (20 MG/ 4 ML)
     Route: 065

REACTIONS (2)
  - Supraventricular extrasystoles [Recovering/Resolving]
  - Deep vein thrombosis [Recovered/Resolved]

NARRATIVE: CASE EVENT DATE: 20221118
